FAERS Safety Report 5757522-0 (Version None)
Quarter: 2008Q2

REPORT INFORMATION
  Report Type: 
  Country: None (occurrence: None)
  Receive Date: 20080603
  Receipt Date: 20080522
  Transmission Date: 20081010
  Serious: Yes (Life-Threatening, Disabling)
  Sender: FDA-Public Use
  Company Number: CH-ELI_LILLY_AND_COMPANY-CH200805004812

PATIENT
  Age: 68 Year
  Sex: Female

DRUGS (3)
  1. EVISTA [Suspect]
     Indication: OSTEOPOROSIS
     Dosage: 60 MG, DAILY (1/D)
     Route: 048
     Dates: start: 20030701
  2. CALCIMAGON-D3 [Concomitant]
     Indication: OSTEOPOROSIS
     Dosage: 500 MG, DAILY (1/D)
     Route: 048
     Dates: start: 20030701
  3. ELTROXIN [Concomitant]
     Indication: HYPOTHYROIDISM
     Dosage: 0.05 MG, 2/D
     Route: 048

REACTIONS (1)
  - ADRENAL ADENOMA [None]
